FAERS Safety Report 14592745 (Version 1)
Quarter: 2018Q1

REPORT INFORMATION
  Report Type: Report from Study
  Country: US (occurrence: US)
  Receive Date: 20180302
  Receipt Date: 20180302
  Transmission Date: 20180509
  Serious: Yes (Hospitalization, Other)
  Sender: FDA-Public Use
  Company Number: US-BAUSCH-BL-2018-005668

PATIENT
  Sex: Female

DRUGS (1)
  1. XIFAXAN [Suspect]
     Active Substance: RIFAXIMIN
     Indication: AMMONIA ABNORMAL
     Route: 065
     Dates: end: 201712

REACTIONS (5)
  - Haematemesis [Recovered/Resolved]
  - Gastric disorder [Unknown]
  - Hospitalisation [Unknown]
  - Product supply issue [Unknown]
  - Off label use [Unknown]
